FAERS Safety Report 10477748 (Version 2)
Quarter: 2014Q4

REPORT INFORMATION
  Report Type: Spontaneous
  Country: IT (occurrence: None)
  Receive Date: 20140924
  Receipt Date: 20141211
  Transmission Date: 20150528
  Serious: Yes (Hospitalization)
  Sender: FDA-Public Use
  Company Number: KAD201409-001120

PATIENT
  Age: 51 Year
  Sex: Male
  Weight: 63 kg

DRUGS (4)
  1. RIBAVIRIN (RIBAVIRIN) [Suspect]
     Active Substance: RIBAVIRIN
     Indication: HEPATITIS C
     Dosage: TABLET, 200 MG, ONCE DAILY, ORAL
     Route: 048
     Dates: start: 20140814, end: 20140904
  2. SOFOSBUVIR (SOFOSBUVIR) [Suspect]
     Active Substance: SOFOSBUVIR
     Indication: HEPATITIS C
     Dosage: TABLET, 400 MG, ONCE DAILY, ORAL
     Route: 048
     Dates: start: 20140814, end: 20140904
  3. CANRENON (CANRENON) (CANRENON) [Concomitant]
  4. SANDIMMUN NEORAL (CICLOSPORIN) (CICLOSPORIN) [Concomitant]

REACTIONS (5)
  - Aspartate aminotransferase increased [None]
  - Bacterascites [None]
  - Enterobacter test positive [None]
  - Blood bilirubin increased [None]
  - Blood creatinine increased [None]

NARRATIVE: CASE EVENT DATE: 20140822
